FAERS Safety Report 14964015 (Version 1)
Quarter: 2018Q2

REPORT INFORMATION
  Report Type: Spontaneous
  Country: US (occurrence: US)
  Receive Date: 20180510
  Receipt Date: 20180510
  Transmission Date: 20180711
  Serious: Yes (Other)
  Sender: FDA-Public Use
  Company Number: None

PATIENT
  Age: 34 Year
  Sex: Female
  Weight: 88.2 kg

DRUGS (6)
  1. TRUVADA [Concomitant]
     Active Substance: EMTRICITABINE\TENOFOVIR DISOPROXIL FUMARATE
  2. ISENTRESS [Concomitant]
     Active Substance: RALTEGRAVIR POTASSIUM
  3. KISQALI [Suspect]
     Active Substance: RIBOCICLIB
     Indication: BREAST CANCER
     Route: 048
     Dates: start: 20180209
  4. ANASTRAZOLE [Concomitant]
     Active Substance: ANASTROZOLE
  5. ZOMETA [Concomitant]
     Active Substance: ZOLEDRONIC ACID
  6. ZARXIO [Concomitant]
     Active Substance: FILGRASTIM-SNDZ

REACTIONS (2)
  - Thrombocytopenia [None]
  - Anaemia [None]
